FAERS Safety Report 5922967-2 (Version None)
Quarter: 2008Q4

REPORT INFORMATION
  Report Type: 
  Country: None (occurrence: None)
  Receive Date: 20081018
  Receipt Date: 20081010
  Transmission Date: 20090506
  Serious: Yes (Hospitalization)
  Sender: FDA-Public Use
  Company Number: FR-PFIZER INC-2007022871

PATIENT
  Age: 75 Year
  Sex: Female

DRUGS (7)
  1. TAHOR [Suspect]
     Route: 048
  2. MOPRAL [Suspect]
     Dosage: DAILY DOSE:20MG
     Route: 048
  3. TOPALGIC [Suspect]
     Route: 048
  4. PREVISCAN [Suspect]
     Route: 048
  5. INDAPAMIDE [Concomitant]
     Route: 048
  6. SELOKEN [Concomitant]
     Route: 048
  7. INDAPAMIDE [Concomitant]

REACTIONS (3)
  - ANAEMIA [None]
  - DRUG TOXICITY [None]
  - PROTHROMBIN LEVEL DECREASED [None]
